FAERS Safety Report 7391641-0 (Version None)
Quarter: 2011Q2

REPORT INFORMATION
  Report Type: 
  Country: None (occurrence: None)
  Receive Date: 20110404
  Receipt Date: 20110331
  Transmission Date: 20111010
  Serious: Yes (Other)
  Sender: FDA-Public Use
  Company Number: JP-ABBOTT-11P-087-0711022-00

PATIENT
  Sex: Female
  Weight: 63 kg

DRUGS (2)
  1. TASUOMIN [Concomitant]
     Indication: BREAST CANCER
     Route: 048
     Dates: start: 20071115, end: 20110217
  2. LEUPRORELIN DEPOT [Suspect]
     Indication: BREAST CANCER
     Route: 058
     Dates: start: 20071115, end: 20090618

REACTIONS (1)
  - BREAST CANCER [None]
